FAERS Safety Report 8906407 (Version 2)
Quarter: 2012Q4

REPORT INFORMATION
  Report Type: Spontaneous
  Country: US (occurrence: None)
  Receive Date: 20121108
  Receipt Date: 20121115
  Transmission Date: 20130627
  Serious: Yes (Hospitalization)
  Sender: FDA-Public Use
  Company Number: 2012AP003774

PATIENT
  Age: 43 Year
  Sex: Female
  Weight: 64 kg

DRUGS (8)
  1. LISINOPRIL TABLETS [Suspect]
     Indication: DRUG USE FOR UNKNOWN INDICATION
  2. NEOSYNEPHRINE [Suspect]
     Indication: HYPOTENSION
  3. MANNITOL [Concomitant]
  4. AMICAR [Concomitant]
  5. LIDOCAINE [Concomitant]
  6. SODIUM BICARBONATE [Concomitant]
  7. HEPARIN [Concomitant]
  8. NORMOSOL [Concomitant]

REACTIONS (3)
  - Hypotension [None]
  - Therapeutic response decreased [None]
  - Drug interaction [None]
